FAERS Safety Report 8330089-9 (Version None)
Quarter: 2012Q2

REPORT INFORMATION
  Report Type: 
  Country: None (occurrence: None)
  Receive Date: 20120420
  Receipt Date: 20120209
  Transmission Date: 20120825
  Serious: Yes (Death)
  Sender: FDA-Public Use
  Company Number: 2012030822

PATIENT
  Age: 63 Year
  Sex: Male

DRUGS (3)
  1. IMMUNE GLOBULIN (HUMAN) [Suspect]
     Indication: HISTIOCYTOSIS HAEMATOPHAGIC
     Dosage: 5 G
  2. STEROID (CORTICOSTEROIDS) [Suspect]
  3. G-CSF (GRANULOCYTE COLONY STIMULATING FACTOR) [Suspect]

REACTIONS (2)
  - RENAL FAILURE [None]
  - HAEMODYNAMIC INSTABILITY [None]
